FAERS Safety Report 20025640 (Version 2)
Quarter: 2021Q4

REPORT INFORMATION
  Report Type: Report from Study
  Country: IT (occurrence: IT)
  Receive Date: 20211102
  Receipt Date: 20211130
  Transmission Date: 20220303
  Serious: Yes (Hospitalization, Other)
  Sender: FDA-Public Use
  Company Number: IT-TAKEDA-IT201910572

PATIENT
  Sex: Male
  Weight: 83 kg

DRUGS (7)
  1. ADVATE [Suspect]
     Active Substance: ANTIHEMOPHILIC FACTOR, HUMAN RECOMBINANT
     Indication: Factor VIII deficiency
     Dosage: 4000 (UNKNOWN UNIT)
     Route: 042
     Dates: start: 20180920
  2. ADVATE [Suspect]
     Active Substance: ANTIHEMOPHILIC FACTOR, HUMAN RECOMBINANT
     Indication: Factor VIII deficiency
     Dosage: 4000 (UNKNOWN UNIT)
     Route: 042
     Dates: start: 20180920
  3. ADVATE [Suspect]
     Active Substance: ANTIHEMOPHILIC FACTOR, HUMAN RECOMBINANT
     Indication: Factor VIII deficiency
     Dosage: 4000 (UNKNOWN UNIT)
     Route: 042
     Dates: start: 20180920
  4. ADVATE [Suspect]
     Active Substance: ANTIHEMOPHILIC FACTOR, HUMAN RECOMBINANT
     Indication: Prophylaxis
     Dosage: 4000 (UNKNOWN UNIT), BID
     Route: 042
     Dates: start: 20180924, end: 20181002
  5. ADVATE [Suspect]
     Active Substance: ANTIHEMOPHILIC FACTOR, HUMAN RECOMBINANT
     Indication: Prophylaxis
     Dosage: 4000 (UNKNOWN UNIT), BID
     Route: 042
     Dates: start: 20180924, end: 20181002
  6. ADVATE [Suspect]
     Active Substance: ANTIHEMOPHILIC FACTOR, HUMAN RECOMBINANT
     Indication: Prophylaxis
     Dosage: 4000 (UNKNOWN UNIT), BID
     Route: 042
     Dates: start: 20180924, end: 20181002
  7. BETAMETHASONE [Concomitant]
     Active Substance: BETAMETHASONE
     Indication: Pain prophylaxis

REACTIONS (3)
  - Arthrodesis [Recovered/Resolved]
  - Haemarthrosis [Recovered/Resolved]
  - Toothache [Recovered/Resolved]

NARRATIVE: CASE EVENT DATE: 20200101
